FAERS Safety Report 20375566 (Version 1)
Quarter: 2022Q1

REPORT INFORMATION
  Report Type: Spontaneous
  Country: US (occurrence: None)
  Receive Date: 20220120
  Receipt Date: 20220120
  Transmission Date: 20220423
  Serious: Yes (Disabling, Congenital Anomaly)
  Sender: FDA-Public Use
  Company Number: None

PATIENT
  Age: 65 Year
  Sex: Male
  Weight: 73.94 kg

DRUGS (1)
  1. MESALAMINE [Suspect]
     Active Substance: MESALAMINE

REACTIONS (2)
  - Erythema of eyelid [None]
  - Ocular hyperaemia [None]

NARRATIVE: CASE EVENT DATE: 20210927
